FAERS Safety Report 6576733-8 (Version None)
Quarter: 2010Q1

REPORT INFORMATION
  Report Type: 
  Country: None (occurrence: None)
  Receive Date: 20100210
  Receipt Date: 20100202
  Transmission Date: 20100710
  Serious: Yes (Hospitalization)
  Sender: FDA-Public Use
  Company Number: IT-ROCHE-680462

PATIENT
  Sex: Female
  Weight: 49 kg

DRUGS (2)
  1. TRASTUZUMAB [Suspect]
     Indication: BREAST CANCER
     Dosage: FREQUENCY REPORTED AS THRICE WEEKLY.
     Route: 042
     Dates: start: 20091012
  2. PANTOPRAZOL [Concomitant]
     Indication: PROPHYLAXIS
     Route: 048
     Dates: start: 20090331

REACTIONS (1)
  - ATRIAL FIBRILLATION [None]
